FAERS Safety Report 23267955 (Version 1)
Quarter: 2023Q4

REPORT INFORMATION
  Report Type: Spontaneous
  Country: US (occurrence: None)
  Receive Date: 20231205
  Receipt Date: 20231205
  Transmission Date: 20240110
  Serious: Yes (Hospitalization, Disabling, Other)
  Sender: FDA-Public Use
  Company Number: None

PATIENT
  Age: 84 Year
  Sex: Male
  Weight: 96.75 kg

DRUGS (2)
  1. ROCKLATAN [Suspect]
     Active Substance: LATANOPROST\NETARSUDIL MESYLATE
     Indication: Glaucoma
     Dosage: FREQUENCY : AT BEDTIME;?
     Route: 047
  2. METHIMAZOLE [Concomitant]
     Active Substance: METHIMAZOLE

REACTIONS (13)
  - Drug ineffective [None]
  - Ocular hyperaemia [None]
  - Photosensitivity reaction [None]
  - Eyelid margin crusting [None]
  - Lacrimation increased [None]
  - Visual impairment [None]
  - Headache [None]
  - Eye pain [None]
  - Dyspnoea [None]
  - Cerebrovascular accident [None]
  - Blindness [None]
  - Eye irritation [None]
  - Instillation site irritation [None]

NARRATIVE: CASE EVENT DATE: 20191124
